FAERS Safety Report 10400706 (Version 1)
Quarter: 2014Q3

REPORT INFORMATION
  Report Type: Spontaneous
  Country: US (occurrence: US)
  Receive Date: 20140821
  Receipt Date: 20140821
  Transmission Date: 20150326
  Serious: Yes (Other)
  Sender: FDA-Public Use
  Company Number: US-GILEAD-2014-0112631

PATIENT
  Sex: Female

DRUGS (1)
  1. SOVALDI [Suspect]
     Active Substance: SOFOSBUVIR
     Indication: HEPATITIS C
     Route: 065

REACTIONS (5)
  - Vomiting [Unknown]
  - Drug ineffective [Unknown]
  - Malaise [Unknown]
  - Anaemia [Unknown]
  - Weight increased [Unknown]

NARRATIVE: CASE EVENT DATE: 201408
